FAERS Safety Report 25270595 (Version 2)
Quarter: 2025Q2

REPORT INFORMATION
  Report Type: Spontaneous
  Country: US (occurrence: US)
  Receive Date: 20250505
  Receipt Date: 20250526
  Transmission Date: 20250717
  Serious: No
  Sender: JOHNSON AND JOHNSON
  Company Number: US-JNJFOC-20250416294

PATIENT
  Age: 44 Year
  Sex: Female

DRUGS (4)
  1. GUSELKUMAB [Suspect]
     Active Substance: GUSELKUMAB
     Indication: Psoriasis
     Route: 065
     Dates: start: 20250310
  2. GUSELKUMAB [Suspect]
     Active Substance: GUSELKUMAB
     Indication: Psoriatic arthropathy
  3. GUSELKUMAB [Suspect]
     Active Substance: GUSELKUMAB
     Indication: Raynaud^s phenomenon
  4. GUSELKUMAB [Suspect]
     Active Substance: GUSELKUMAB
     Indication: Scleroderma

REACTIONS (4)
  - Device leakage [Unknown]
  - Skin injury [Unknown]
  - Product dose omission issue [Unknown]
  - Product label issue [Unknown]

NARRATIVE: CASE EVENT DATE: 20250407
